FAERS Safety Report 8177934-8 (Version None)
Quarter: 2012Q1

REPORT INFORMATION
  Report Type: 
  Country: None (occurrence: None)
  Receive Date: 20120301
  Receipt Date: 20120223
  Transmission Date: 20120608
  Serious: Yes (Other)
  Sender: FDA-Public Use
  Company Number: US-VERTEX PHARMACEUTICALS INC.-AE-2012-002665

PATIENT
  Sex: Female

DRUGS (5)
  1. RIBASPHERE [Concomitant]
     Dates: start: 20120222
  2. INCIVEK [Suspect]
     Indication: HEPATITIS C
     Route: 048
     Dates: start: 20111210, end: 20120202
  3. PEGASYS [Concomitant]
     Dates: start: 20120222
  4. RIBASPHERE [Concomitant]
     Indication: HEPATITIS C
     Route: 048
     Dates: start: 20111210, end: 20120202
  5. PEGASYS [Concomitant]
     Indication: HEPATITIS C
     Route: 058
     Dates: start: 20111210, end: 20120202

REACTIONS (6)
  - RASH GENERALISED [None]
  - PAIN [None]
  - DYSPNOEA [None]
  - SKIN SWELLING [None]
  - BLISTER [None]
  - WEIGHT INCREASED [None]
